FAERS Safety Report 18247398 (Version 2)
Quarter: 2020Q4

REPORT INFORMATION
  Report Type: Spontaneous
  Country: KR (occurrence: KR)
  Receive Date: 20200909
  Receipt Date: 20201014
  Transmission Date: 20210113
  Serious: Yes (Disabling, Other)
  Sender: FDA-Public Use
  Company Number: KR-ASTRAZENECA-2020SF11796

PATIENT
  Age: 64 Year
  Sex: Female

DRUGS (3)
  1. SYMBICORT [Suspect]
     Active Substance: BUDESONIDE\FORMOTEROL FUMARATE DIHYDRATE
     Indication: ASTHMA
     Dosage: 160/4.5, ONCE DAILY
     Route: 055
     Dates: start: 2000
  2. SYMBICORT [Suspect]
     Active Substance: BUDESONIDE\FORMOTEROL FUMARATE DIHYDRATE
     Indication: ASTHMA
     Dosage: 160/4.5, 2 TIMES A DAY IN HER OWN DISCRETION
     Route: 055
  3. RESPIMAT [Concomitant]

REACTIONS (7)
  - Dyspnoea [Not Recovered/Not Resolved]
  - Body temperature increased [Recovered/Resolved]
  - Intentional product use issue [Unknown]
  - Tuberculosis [Recovered/Resolved]
  - Product administration error [Unknown]
  - Pulmonary function test decreased [Unknown]
  - Weight decreased [Not Recovered/Not Resolved]

NARRATIVE: CASE EVENT DATE: 2019
